FAERS Safety Report 8271716-4 (Version None)
Quarter: 2012Q2

REPORT INFORMATION
  Report Type: 
  Country: None (occurrence: None)
  Receive Date: 20120410
  Receipt Date: 20120402
  Transmission Date: 20120825
  Serious: Yes (Death, Hospitalization)
  Sender: FDA-Public Use
  Company Number: US-CELGENEUS-163-21880-12040168

PATIENT
  Sex: Female

DRUGS (5)
  1. PANTOPRAZOLE [Concomitant]
     Route: 065
  2. DIGOXIN [Concomitant]
     Route: 065
  3. PHENYTOIN [Concomitant]
     Route: 065
  4. REVLIMID [Suspect]
     Indication: LYMPHOMA
     Dosage: 10 MILLIGRAM
     Route: 048
     Dates: start: 20110901, end: 20111201
  5. ASPIRIN [Concomitant]
     Route: 065

REACTIONS (5)
  - ASTHENIA [None]
  - DEEP VEIN THROMBOSIS [None]
  - NECROTISING FASCIITIS [None]
  - SEPTIC SHOCK [None]
  - DEATH [None]
